FAERS Safety Report 6384047-4 (Version None)
Quarter: 2009Q4

REPORT INFORMATION
  Report Type: 
  Country: None (occurrence: None)
  Receive Date: 20091001
  Receipt Date: 20090925
  Transmission Date: 20100525
  Serious: Yes (Hospitalization)
  Sender: FDA-Public Use
  Company Number: US-JNJFOC-20090801988

PATIENT
  Sex: Female
  Weight: 74.84 kg

DRUGS (9)
  1. TOPAMAX [Suspect]
     Route: 048
  2. TOPAMAX [Suspect]
     Route: 048
  3. TOPAMAX [Suspect]
     Route: 048
  4. TOPAMAX [Suspect]
     Indication: MIGRAINE PROPHYLAXIS
     Dosage: 75-100
     Route: 048
  5. ORACEA [Concomitant]
     Indication: ACNE
     Dosage: FROM PAST ONE YEAR
     Route: 065
  6. KEPRA [Concomitant]
     Indication: EPILEPSY
     Route: 065
  7. UNKNOWN MEDICATION [Concomitant]
     Route: 065
  8. EVISTA [Concomitant]
     Indication: OSTEOPENIA
     Dosage: FROM 5 YEARS
     Route: 065
  9. VITAMIN D [Concomitant]
     Dosage: FROM PAST 1 YEAR
     Route: 065

REACTIONS (2)
  - DYSCALCULIA [None]
  - HOSPITALISATION [None]
